FAERS Safety Report 6764027-7 (Version None)
Quarter: 2010Q2

REPORT INFORMATION
  Report Type: 
  Country: None (occurrence: None)
  Receive Date: 20100610
  Receipt Date: 20091005
  Transmission Date: 20101027
  Serious: No
  Sender: FDA-Public Use
  Company Number: US-ASTRAZENECA-2009SE08268

PATIENT
  Age: 71 Year
  Sex: Female

DRUGS (6)
  1. FASLODEX [Suspect]
     Indication: BREAST CANCER
     Dosage: 6 INJECTIONS
     Route: 030
     Dates: start: 20090201, end: 20090814
  2. FOSAMAX [Concomitant]
  3. PREDNISONE [Concomitant]
  4. DILTIAZEM [Concomitant]
  5. DUONEB [Concomitant]
  6. OXYGEN AT NIGHT [Concomitant]

REACTIONS (4)
  - DIZZINESS [None]
  - ERYTHEMA [None]
  - EYE PRURITUS [None]
  - HYPOAESTHESIA [None]
